FAERS Safety Report 22232440 (Version 1)
Quarter: 2023Q2

REPORT INFORMATION
  Report Type: Spontaneous
  Country: US (occurrence: None)
  Receive Date: 20230420
  Receipt Date: 20230420
  Transmission Date: 20230721
  Serious: No
  Sender: FDA-Public Use
  Company Number: US-ROCHE-3052711

PATIENT
  Sex: Male

DRUGS (13)
  1. ESBRIET [Suspect]
     Active Substance: PIRFENIDONE
     Indication: Idiopathic pulmonary fibrosis
     Dosage: LAST DOSE TAKEN ON 15/MAR/2022
     Route: 048
     Dates: start: 20170905
  2. HIZENTRA [Concomitant]
     Active Substance: HUMAN IMMUNOGLOBULIN G
  3. AMLODIPINE BESYLATE [Concomitant]
     Active Substance: AMLODIPINE BESYLATE
  4. AMOXICILLIN\CLAVULANATE POTASSIUM [Concomitant]
     Active Substance: AMOXICILLIN\CLAVULANATE POTASSIUM
  5. ATORVASTATIN CALCIUM [Concomitant]
     Active Substance: ATORVASTATIN CALCIUM
  6. BUPROPION HYDROCHLORIDE [Concomitant]
     Active Substance: BUPROPION HYDROCHLORIDE
  7. ESCITALOPRAM OXALATE [Concomitant]
     Active Substance: ESCITALOPRAM OXALATE
  8. IBUPROFEN [Concomitant]
     Active Substance: IBUPROFEN
  9. LAMOTRIGINE [Concomitant]
     Active Substance: LAMOTRIGINE
  10. LISINOPRIL [Concomitant]
     Active Substance: LISINOPRIL
  11. OXYCODONE AND ACETAMINOPHEN [Concomitant]
     Active Substance: ACETAMINOPHEN\OXYCODONE HYDROCHLORIDE
  12. TRAZODONE HCL [Concomitant]
     Active Substance: TRAZODONE HYDROCHLORIDE
  13. ACTEMRA [Concomitant]
     Active Substance: TOCILIZUMAB
     Route: 065

REACTIONS (2)
  - Product dose omission in error [Unknown]
  - No adverse event [Unknown]
